FAERS Safety Report 16478569 (Version 3)
Quarter: 2019Q4

REPORT INFORMATION
  Report Type: Spontaneous
  Country: US (occurrence: US)
  Receive Date: 20190626
  Receipt Date: 20191014
  Transmission Date: 20200122
  Serious: No
  Sender: FDA-Public Use
  Company Number: US-PFIZER INC-2019271870

PATIENT
  Age: 72 Year
  Sex: Female
  Weight: 50.79 kg

DRUGS (2)
  1. IBRANCE [Suspect]
     Active Substance: PALBOCICLIB
     Indication: BREAST CANCER METASTATIC
     Dosage: 125 MG, CYCLIC (1-21 Q 28 DAYS)
     Route: 048
     Dates: start: 20190606, end: 20190902
  2. IBRANCE [Suspect]
     Active Substance: PALBOCICLIB
     Dosage: 125 MG, CYCLIC (DAILYX 21 DAYS, 28 DAY CYCLE)
     Route: 048
     Dates: start: 20190606

REACTIONS (9)
  - Fatigue [Unknown]
  - Candida infection [Unknown]
  - Abdominal pain upper [Unknown]
  - Diarrhoea [Unknown]
  - Neoplasm progression [Unknown]
  - Gingival pain [Unknown]
  - Pleurisy [Unknown]
  - Urinary tract infection [Unknown]
  - Tongue disorder [Unknown]
